FAERS Safety Report 15345399 (Version 2)
Quarter: 2018Q4

REPORT INFORMATION
  Report Type: Report from Study
  Country: DE (occurrence: DE)
  Receive Date: 20180903
  Receipt Date: 20181003
  Transmission Date: 20190204
  Serious: Yes (Hospitalization, Other)
  Sender: FDA-Public Use
  Company Number: DE-SHIRE-DE201832977

PATIENT

DRUGS (2)
  1. FACTOR VIII INHIBITOR BYPASSING FRACTION; BAXJECT II NF [Suspect]
     Active Substance: ANTI-INHIBITOR COAGULANT COMPLEX
     Indication: PROPHYLAXIS
  2. FACTOR VIII INHIBITOR BYPASSING FRACTION; BAXJECT II NF [Suspect]
     Active Substance: ANTI-INHIBITOR COAGULANT COMPLEX
     Indication: FACTOR VIII DEFICIENCY
     Dosage: 1000 IU, 3X A WEEK
     Route: 042
     Dates: start: 20160317

REACTIONS (2)
  - Pain [Recovering/Resolving]
  - Pelvic haemorrhage [Not Recovered/Not Resolved]

NARRATIVE: CASE EVENT DATE: 20180713
